FAERS Safety Report 4711059-6 (Version None)
Quarter: 2005Q3

REPORT INFORMATION
  Report Type: 
  Country: None (occurrence: None)
  Receive Date: 20050706
  Receipt Date: 20050427
  Transmission Date: 20060218
  Serious: No
  Sender: FDA-Public Use
  Company Number: US129617

PATIENT
  Age: 65 Year
  Sex: Female

DRUGS (5)
  1. SENSIPAR [Suspect]
     Indication: HYPERPARATHYROIDISM SECONDARY
     Dosage: 30 MG,  1 IN 1 DAYS,  PO
     Route: 048
     Dates: start: 20050425
  2. SEVELAMER HCL [Concomitant]
  3. CLOPIDOGREL BISULFATE [Concomitant]
  4. IRON [Concomitant]
  5. ASPIRIN [Concomitant]

REACTIONS (2)
  - DRY MOUTH [None]
  - TACHYCARDIA [None]
